FAERS Safety Report 5107955-0 (Version None)
Quarter: 2006Q3

REPORT INFORMATION
  Report Type: 
  Country: None (occurrence: None)
  Receive Date: 20060919
  Receipt Date: 20060628
  Transmission Date: 20061208
  Serious: Yes (Hospitalization)
  Sender: FDA-Public Use
  Company Number: US-BRISTOL-MYERS SQUIBB COMPANY-13428198

PATIENT
  Age: 61 Year
  Sex: Male

DRUGS (27)
  1. CARBOPLATIN [Suspect]
     Indication: NON-SMALL CELL LUNG CANCER
     Route: 042
     Dates: start: 20060622, end: 20060622
  2. PACLITAXEL [Suspect]
     Indication: NON-SMALL CELL LUNG CANCER
     Route: 042
     Dates: start: 20060622, end: 20060622
  3. PROMETHAZINE [Concomitant]
     Dates: start: 20060619
  4. NEXIUM [Concomitant]
     Dates: start: 20060620
  5. OXYCODONE HCL + ACETAMINOPHEN [Concomitant]
     Dosage: DOSAGE FORM = 7.5/500 MG
     Dates: start: 20050114, end: 20050910
  6. PRAVACHOL [Concomitant]
     Dates: start: 20050114, end: 20050615
  7. LIDODERM PATCH [Concomitant]
     Dates: start: 20050114, end: 20050324
  8. GABAPENTIN [Concomitant]
     Dates: start: 20060114
  9. TIZANIDINE HCL [Concomitant]
     Dates: start: 20050114
  10. PAXIL CR [Concomitant]
     Dates: start: 20040925, end: 20050210
  11. XANAX SR [Concomitant]
     Dates: start: 20041005, end: 20050714
  12. DEPAKOTE ER [Concomitant]
     Dates: start: 20041230, end: 20050615
  13. MOBIC [Concomitant]
     Dates: start: 20041120
  14. MIRTAZAPINE [Concomitant]
     Dates: start: 20050210
  15. LEXAPRO [Concomitant]
     Dates: start: 20050210, end: 20050714
  16. ABILIFY [Concomitant]
     Dates: start: 20050223, end: 20050422
  17. SEROQUEL [Concomitant]
     Dates: start: 20050223, end: 20051201
  18. CEPHALEXIN [Concomitant]
     Dates: start: 20050228
  19. PAROXETINE HCL [Concomitant]
     Dates: start: 20050324, end: 20050615
  20. ENDOCET [Concomitant]
     Dosage: DOSAGE FORM = 5/325 MG
     Dates: start: 20050324
  21. DUONEB [Concomitant]
     Dates: start: 20050612
  22. RANITIDINE [Concomitant]
     Dates: start: 20060619
  23. DICLOFENAC [Concomitant]
     Dates: start: 20060327
  24. MIRACLE MOUTHWASH [Concomitant]
     Dates: start: 20060607
  25. COMPAZINE [Concomitant]
     Dates: start: 20060626
  26. XYLOCAINE [Concomitant]
  27. ROXANOL [Concomitant]

REACTIONS (2)
  - FEBRILE NEUTROPENIA [None]
  - STOMATITIS [None]
